FAERS Safety Report 7652803-8 (Version None)
Quarter: 2011Q3

REPORT INFORMATION
  Report Type: 
  Country: None (occurrence: None)
  Receive Date: 20110803
  Receipt Date: 20110729
  Transmission Date: 20111222
  Serious: Yes (Other)
  Sender: FDA-Public Use
  Company Number: US-AMGEN-USASP2011010660

PATIENT
  Age: 83 Year
  Sex: Female
  Weight: 160 kg

DRUGS (21)
  1. PRILOSEC [Concomitant]
  2. DIOVAN [Concomitant]
  3. MULTIPLE VITAMINS [Concomitant]
  4. LIPITOR [Concomitant]
  5. PREDNISONE [Concomitant]
  6. FERROUS SULFATE TAB [Concomitant]
  7. TAMOXIFEN CITRATE [Concomitant]
  8. AMBIEN [Concomitant]
  9. HYDROCHLOROTHIAZIDE [Concomitant]
  10. ASPIRIN [Concomitant]
  11. CORTICOSTEROIDS [Concomitant]
  12. INSULIN [Concomitant]
  13. DEXAMETHASONE [Concomitant]
  14. CLONIDINE [Concomitant]
  15. NPLATE [Suspect]
     Indication: IDIOPATHIC THROMBOCYTOPENIC PURPURA
     Dosage: 10 A?G/KG, UNK
     Dates: start: 20090804, end: 20110105
  16. NORVASC [Concomitant]
  17. STOOL SOFTENER [Concomitant]
  18. GLYBURIDE [Concomitant]
  19. ATENOLOL [Concomitant]
  20. IMMUNOGLOBULINS [Concomitant]
  21. CALCIUM ACETATE [Concomitant]

REACTIONS (11)
  - LYMPHADENOPATHY [None]
  - BONE MARROW RETICULIN FIBROSIS [None]
  - HAEMORRHOIDS [None]
  - ERYTHEMA [None]
  - THROMBOCYTOSIS [None]
  - MANTLE CELL LYMPHOMA [None]
  - NECK PAIN [None]
  - FATIGUE [None]
  - PALLOR [None]
  - LEUKOCYTOSIS [None]
  - NORMOCHROMIC NORMOCYTIC ANAEMIA [None]
